FAERS Safety Report 5859175-X (Version None)
Quarter: 2008Q3

REPORT INFORMATION
  Report Type: 
  Country: None (occurrence: None)
  Receive Date: 20080827
  Receipt Date: 20080716
  Transmission Date: 20090109
  Serious: Yes (Other)
  Sender: FDA-Public Use
  Company Number: PHEH2008US07419

PATIENT
  Sex: Male

DRUGS (1)
  1. ZOMETA [Suspect]
     Dosage: 4 MG, Q3MO
     Route: 042
     Dates: start: 20080416

REACTIONS (4)
  - ASTHENIA [None]
  - ATAXIA [None]
  - CHILLS [None]
  - PYREXIA [None]
